FAERS Safety Report 5277880-3 (Version None)
Quarter: 2007Q1

REPORT INFORMATION
  Report Type: 
  Country: None (occurrence: None)
  Receive Date: 20070327
  Receipt Date: 20070321
  Transmission Date: 20070707
  Serious: Yes (Hospitalization, Other)
  Sender: FDA-Public Use
  Company Number: AT-ABBOTT-07P-009-0360104-00

PATIENT
  Sex: Male

DRUGS (4)
  1. HUMIRA [Suspect]
     Indication: POLYARTHRITIS
     Route: 058
     Dates: start: 20060531, end: 20070128
  2. SILYMARIN [Concomitant]
     Indication: POLYARTHRITIS
  3. DICLOFENAC SODIUM [Concomitant]
     Indication: POLYARTHRITIS
  4. PREDNISOLONE [Concomitant]
     Indication: POLYARTHRITIS

REACTIONS (4)
  - CARDIAC FAILURE [None]
  - GRANULOMA [None]
  - MYOCARDIAL INFARCTION [None]
  - PNEUMONIA [None]
